FAERS Safety Report 9266940 (Version 1)
Quarter: 2013Q2

REPORT INFORMATION
  Report Type: Spontaneous
  Country: US (occurrence: US)
  Receive Date: 20130502
  Receipt Date: 20130502
  Transmission Date: 20140414
  Serious: No
  Sender: FDA-Public Use
  Company Number: US-PFIZER INC-2013133024

PATIENT
  Age: 48 Year
  Sex: Male
  Weight: 97 kg

DRUGS (6)
  1. LEVOXYL [Suspect]
     Indication: THYROID CANCER
     Dosage: UNK
     Dates: start: 1996
  2. LEVOXYL [Suspect]
     Dosage: 200 UG, DAILY
  3. LEVOXYL [Suspect]
     Dosage: 250 UG, DAILY
  4. LEVOXYL [Suspect]
     Dosage: UNK
  5. DIOVAN HCT [Concomitant]
     Indication: HYPERTENSION
     Dosage: 160/25 MG, 1X/DAY
  6. POTASSIUM [Concomitant]
     Indication: SUPPLEMENTATION THERAPY
     Dosage: 20 MG, 1X/DAY

REACTIONS (1)
  - Blood test abnormal [Unknown]
